FAERS Safety Report 9019823 (Version 2)
Quarter: 2013Q1

REPORT INFORMATION
  Report Type: Spontaneous
  Country: SE (occurrence: SE)
  Receive Date: 20130118
  Receipt Date: 20130222
  Transmission Date: 20140127
  Serious: Yes (Other)
  Sender: FDA-Public Use
  Company Number: SE-ROCHE-1180947

PATIENT
  Age: 49 Year
  Sex: Female

DRUGS (3)
  1. MABTHERA [Suspect]
     Indication: RHEUMATOID ARTHRITIS
     Route: 065
     Dates: start: 20090511, end: 20121025
  2. TROMBYL [Concomitant]
     Route: 065
  3. ORUDIS RETARD [Concomitant]
     Dosage: PROLONGED RELEASE CAPSULE, HARD
     Route: 065

REACTIONS (1)
  - Granuloma annulare [Not Recovered/Not Resolved]
